FAERS Safety Report 7764271-6 (Version None)
Quarter: 2011Q3

REPORT INFORMATION
  Report Type: 
  Country: None (occurrence: None)
  Receive Date: 20110919
  Receipt Date: 20110907
  Transmission Date: 20111222
  Serious: Yes (Life-Threatening, Hospitalization)
  Sender: FDA-Public Use
  Company Number: VISP-PR-1108S-0339

PATIENT
  Age: 31 Year
  Sex: Male

DRUGS (1)
  1. VISIPAQUE [Suspect]
     Indication: CSF SHUNT OPERATION
     Dosage: 60 ML, SINGLE DOSE, INTRAVENOUS
     Route: 042
     Dates: start: 20110813, end: 20110813

REACTIONS (4)
  - PALLOR [None]
  - CARDIAC ARREST [None]
  - UNRESPONSIVE TO STIMULI [None]
  - DYSPNOEA [None]
